FAERS Safety Report 18539482 (Version 1)
Quarter: 2020Q4

REPORT INFORMATION
  Report Type: Spontaneous
  Country: FR (occurrence: FR)
  Receive Date: 20201124
  Receipt Date: 20201124
  Transmission Date: 20210114
  Serious: Yes (Hospitalization)
  Sender: FDA-Public Use
  Company Number: FR-TEVA-2020-FR-1851357

PATIENT
  Age: 68 Year
  Sex: Male
  Weight: 68 kg

DRUGS (10)
  1. RAMIPRIL. [Concomitant]
     Active Substance: RAMIPRIL
     Route: 048
  2. LEXOMIL [Concomitant]
     Active Substance: BROMAZEPAM
     Route: 048
  3. VIMPAT [Concomitant]
     Active Substance: LACOSAMIDE
     Dosage: 100 MG
     Route: 048
  4. CHIBRO-PROSCAR 5 MG, COMPRIME PELLICULE [Concomitant]
     Active Substance: FINASTERIDE
     Route: 048
  5. KEPPRA [Concomitant]
     Active Substance: LEVETIRACETAM
     Dosage: 1000 MG
     Route: 048
  6. PREVISCAN 20 MG, COMPRIME SECABLE [Concomitant]
     Active Substance: FLUINDIONE
     Route: 048
  7. BISOPROLOL (FUMARATE ACIDE DE) [Concomitant]
     Active Substance: BISOPROLOL FUMARATE
     Dosage: 5  MG
     Route: 048
  8. LIPTRUZET [Concomitant]
     Active Substance: ATORVASTATIN CALCIUM\EZETIMIBE
     Dosage: 1 DOSAGE FORMS
     Route: 048
  9. CISPLATINE [Suspect]
     Active Substance: CISPLATIN
     Indication: BRONCHIAL CARCINOMA
     Dosage: 160 MG
     Route: 042
     Dates: start: 20190827, end: 20190827
  10. ALIMTA [Suspect]
     Active Substance: PEMETREXED DISODIUM
     Indication: BRONCHIAL CARCINOMA
     Dosage: 1000 MG
     Route: 042
     Dates: start: 20190827, end: 20190827

REACTIONS (1)
  - Acute kidney injury [Recovered/Resolved]

NARRATIVE: CASE EVENT DATE: 20190916
